FAERS Safety Report 5001279-8 (Version None)
Quarter: 2006Q1

REPORT INFORMATION
  Report Type: 
  Country: None (occurrence: None)
  Receive Date: 20060315
  Receipt Date: 20060209
  Transmission Date: 20060701
  Serious: Yes (Other)
  Sender: FDA-Public Use
  Company Number: 436035

PATIENT
  Sex: Female

DRUGS (1)
  1. BONIVA [Suspect]
     Dosage: ORAL
     Dates: start: 20060122, end: 20060122

REACTIONS (3)
  - OSTEONECROSIS [None]
  - PAIN IN JAW [None]
  - RASH [None]
